FAERS Safety Report 9737394 (Version 3)
Quarter: 2013Q4

REPORT INFORMATION
  Report Type: Spontaneous
  Country: US (occurrence: US)
  Receive Date: 20131206
  Receipt Date: 20131218
  Transmission Date: 20140711
  Serious: Yes (Hospitalization, Other)
  Sender: FDA-Public Use
  Company Number: US-BAXTER-2013BAX048257

PATIENT
  Age: 87 Year
  Sex: Female

DRUGS (1)
  1. DIANEAL LOW CALCIUM [Suspect]
     Indication: RENAL FAILURE CHRONIC
     Route: 033
     Dates: start: 20131111

REACTIONS (4)
  - Bradycardia [Unknown]
  - Pneumonia [Recovering/Resolving]
  - Gastritis [Recovered/Resolved]
  - Diarrhoea [Unknown]
